FAERS Safety Report 6140450-9 (Version None)
Quarter: 2009Q2

REPORT INFORMATION
  Report Type: 
  Country: None (occurrence: None)
  Receive Date: 20090401
  Receipt Date: 20090320
  Transmission Date: 20091009
  Serious: Yes (Hospitalization)
  Sender: FDA-Public Use
  Company Number: FR-PFIZER INC-2009188485

PATIENT

DRUGS (1)
  1. ZOLOFT [Suspect]
     Dosage: 50 MG, UNK
     Route: 048

REACTIONS (4)
  - DRUG TOXICITY [None]
  - INTENTIONAL DRUG MISUSE [None]
  - NAUSEA [None]
  - VOMITING [None]
